FAERS Safety Report 16896448 (Version 1)
Quarter: 2019Q4

REPORT INFORMATION
  Report Type: Spontaneous
  Country: ES (occurrence: ES)
  Receive Date: 20191008
  Receipt Date: 20191008
  Transmission Date: 20200122
  Serious: Yes (Hospitalization)
  Sender: FDA-Public Use
  Company Number: ES-CANTON LABORATORIES, LLC-2075425

PATIENT
  Age: 57 Year
  Sex: Female

DRUGS (6)
  1. HIDROFEROL [Concomitant]
     Active Substance: CALCIFEDIOL
     Route: 048
     Dates: start: 201807, end: 20190517
  2. ATORVASTATIN CALCIUM. [Concomitant]
     Active Substance: ATORVASTATIN CALCIUM
     Route: 048
     Dates: start: 2013, end: 20190527
  3. NAPROSYN [Suspect]
     Active Substance: NAPROXEN
     Indication: PAIN
     Route: 048
     Dates: start: 20190210, end: 20190517
  4. OMEPRAZOLE. [Suspect]
     Active Substance: OMEPRAZOLE
     Route: 048
     Dates: start: 2015, end: 20190517
  5. LEVOTHYROXINE. [Concomitant]
     Active Substance: LEVOTHYROXINE
     Route: 048
     Dates: end: 20190517
  6. EZETROL [Concomitant]
     Active Substance: EZETIMIBE
     Route: 048
     Dates: start: 2015, end: 20190517

REACTIONS (1)
  - Colitis [Recovered/Resolved]

NARRATIVE: CASE EVENT DATE: 20190517
